FAERS Safety Report 17161843 (Version 1)
Quarter: 2019Q4

REPORT INFORMATION
  Report Type: Report from Study
  Country: None (occurrence: DE)
  Receive Date: 20191217
  Receipt Date: 20191217
  Transmission Date: 20200122
  Serious: Yes (Death, Other)
  Sender: FDA-Public Use
  Company Number: DE-ABBVIE-19K-062-3196641-00

PATIENT
  Age: 53 Year
  Sex: Female

DRUGS (1)
  1. HUMIRA [Suspect]
     Active Substance: ADALIMUMAB
     Indication: PSORIATIC ARTHROPATHY
     Route: 058
     Dates: start: 20170613

REACTIONS (3)
  - Death [Fatal]
  - Diabetes mellitus [Not Recovered/Not Resolved]
  - Parathyroidectomy [Not Recovered/Not Resolved]

NARRATIVE: CASE EVENT DATE: 20190423
